FAERS Safety Report 8083525-X (Version None)
Quarter: 2012Q1

REPORT INFORMATION
  Report Type: 
  Country: None (occurrence: None)
  Receive Date: 20120127
  Receipt Date: 20110117
  Transmission Date: 20120608
  Serious: No
  Sender: FDA-Public Use
  Company Number: US-ABBOTT-11P-163-0698124-00

PATIENT
  Age: 46 Year
  Sex: Female

DRUGS (4)
  1. TRAZADONE OR AMBIEN [Concomitant]
     Indication: INSOMNIA
  2. SAVELLA [Concomitant]
     Indication: FIBROMYALGIA
  3. HUMIRA [Suspect]
     Indication: RHEUMATOID ARTHRITIS
  4. LYRICA [Concomitant]
     Indication: PRODUCT USED FOR UNKNOWN INDICATION

REACTIONS (2)
  - OSTEOPOROSIS [None]
  - INJECTION SITE PAIN [None]
